FAERS Safety Report 15593741 (Version 7)
Quarter: 2022Q2

REPORT INFORMATION
  Report Type: Spontaneous
  Country: US (occurrence: US)
  Receive Date: 20181107
  Receipt Date: 20220516
  Transmission Date: 20220721
  Serious: Yes (Other)
  Sender: FDA-Public Use
  Company Number: US-PFIZER INC-2018454674

PATIENT
  Age: 64 Year
  Sex: Male
  Weight: 76.372 kg

DRUGS (4)
  1. LYRICA [Suspect]
     Active Substance: PREGABALIN
     Indication: Spinal operation
     Dosage: 150 MG, 3X/DAY
     Route: 048
  2. LYRICA [Suspect]
     Active Substance: PREGABALIN
     Indication: Nerve injury
     Dosage: 150 MG, 3X/DAY (ONE IN THE MORNING, ONE AFTER LUNCH AND ONE AT BEDTIME)
     Dates: start: 2015, end: 202007
  3. LYRICA [Suspect]
     Active Substance: PREGABALIN
     Indication: Polyneuropathy
     Dosage: 150 MG, 1X/DAY (ONLY TAKING ONE A DAY INSTEAD OF 3 A DAY AS PRESCRIBED)
     Dates: start: 201903
  4. LYRICA [Suspect]
     Active Substance: PREGABALIN
     Indication: Pain

REACTIONS (3)
  - Bladder cancer [Unknown]
  - Intentional product use issue [Unknown]
  - Pain [Unknown]

NARRATIVE: CASE EVENT DATE: 20190301
